FAERS Safety Report 6717643-2 (Version None)
Quarter: 2010Q2

REPORT INFORMATION
  Report Type: 
  Country: None (occurrence: None)
  Receive Date: 20100510
  Receipt Date: 20100303
  Transmission Date: 20101027
  Serious: No
  Sender: FDA-Public Use
  Company Number: A0848047A

PATIENT
  Age: 25 Year
  Sex: Female

DRUGS (3)
  1. ALTABAX [Suspect]
     Indication: STAPHYLOCOCCAL INFECTION
     Route: 061
     Dates: start: 20100208, end: 20100213
  2. BIRTH CONTROL PILLS [Concomitant]
  3. UNKNOWN MEDICATION [Concomitant]

REACTIONS (2)
  - APPLICATION SITE PAIN [None]
  - LACRIMATION INCREASED [None]
